FAERS Safety Report 9288668 (Version 1)
Quarter: 2013Q2

REPORT INFORMATION
  Report Type: Spontaneous
  Country: US (occurrence: None)
  Receive Date: 20130513
  Receipt Date: 20130513
  Transmission Date: 20140414
  Serious: No
  Sender: FDA-Public Use
  Company Number: None

PATIENT
  Age: 56 None
  Sex: Male
  Weight: 89.4 kg

DRUGS (1)
  1. ACETAMINOPHEN\HYDROCODONE [Suspect]
     Indication: PAIN
     Dosage: MG
     Route: 048
     Dates: start: 20121113, end: 20130402

REACTIONS (2)
  - Overdose [None]
  - Confusional state [None]
